FAERS Safety Report 24057985 (Version 3)
Quarter: 2025Q3

REPORT INFORMATION
  Report Type: Spontaneous
  Country: EU (occurrence: EU)
  Receive Date: 20240707
  Receipt Date: 20250804
  Transmission Date: 20251021
  Serious: Yes (Other)
  Sender: NOVARTIS
  Company Number: EU-002147023-NVSC2024IT135701

PATIENT
  Age: 28 Year
  Sex: Female

DRUGS (7)
  1. DEFERASIROX [Suspect]
     Active Substance: DEFERASIROX
     Indication: Chelation therapy
     Route: 065
  2. DEFERASIROX [Suspect]
     Active Substance: DEFERASIROX
     Indication: Iron overload
  3. LUSPATERCEPT [Suspect]
     Active Substance: LUSPATERCEPT
     Indication: Chelation therapy
     Dosage: 1 MG/KG, Q3W
     Route: 065
     Dates: start: 2021
  4. LUSPATERCEPT [Suspect]
     Active Substance: LUSPATERCEPT
     Route: 065
  5. LUSPATERCEPT [Suspect]
     Active Substance: LUSPATERCEPT
     Route: 065
  6. VITAMIN D [Concomitant]
     Active Substance: VITAMIN D NOS
     Indication: Vitamin D deficiency
     Route: 065
  7. FOLIC ACID [Concomitant]
     Active Substance: FOLIC ACID
     Indication: Folate deficiency
     Route: 065

REACTIONS (2)
  - Premature delivery [Unknown]
  - Maternal exposure during pregnancy [Unknown]
